FAERS Safety Report 18307759 (Version 1)
Quarter: 2020Q3

REPORT INFORMATION
  Report Type: Spontaneous
  Country: US (occurrence: US)
  Receive Date: 20200924
  Receipt Date: 20200924
  Transmission Date: 20201103
  Serious: No
  Sender: FDA-Public Use
  Company Number: US-ASTRAZENECA-2020SF18328

PATIENT
  Sex: Female

DRUGS (9)
  1. OPANA [Concomitant]
     Active Substance: OXYMORPHONE HYDROCHLORIDE
  2. PHENERGAN [Concomitant]
     Active Substance: PROMETHAZINE HYDROCHLORIDE
  3. FENTANYL. [Concomitant]
     Active Substance: FENTANYL
  4. PRILOSEC [Suspect]
     Active Substance: OMEPRAZOLE MAGNESIUM
     Dosage: UNKNOWN
     Route: 048
  5. TRAZODONE [Concomitant]
     Active Substance: TRAZODONE HYDROCHLORIDE
  6. OXYCODONE [Concomitant]
     Active Substance: OXYCODONE
  7. KLONOPIN [Concomitant]
     Active Substance: CLONAZEPAM
  8. ZOLOFT [Concomitant]
     Active Substance: SERTRALINE HYDROCHLORIDE
  9. HYDROMORPHONE [Concomitant]
     Active Substance: HYDROMORPHONE

REACTIONS (13)
  - Mental disorder [Unknown]
  - Rheumatoid arthritis [Unknown]
  - Skin mass [Unknown]
  - Gait disturbance [Unknown]
  - Contusion [Unknown]
  - Neck pain [Unknown]
  - Dementia [Unknown]
  - Muscle disorder [Unknown]
  - Insomnia [Unknown]
  - Nightmare [Unknown]
  - Vomiting [Unknown]
  - Fall [Unknown]
  - Malaise [Unknown]
